FAERS Safety Report 7395254-6 (Version None)
Quarter: 2011Q2

REPORT INFORMATION
  Report Type: 
  Country: None (occurrence: None)
  Receive Date: 20110405
  Receipt Date: 20110324
  Transmission Date: 20111010
  Serious: Yes (Hospitalization)
  Sender: FDA-Public Use
  Company Number: BR-SOLVAY-00311001987

PATIENT
  Age: 838 Month
  Sex: Male
  Weight: 86 kg

DRUGS (3)
  1. GEMZAR [Suspect]
     Indication: CHEMOTHERAPY
     Dosage: DAILY DOSE:  UNKNOWN
     Route: 065
     Dates: start: 20091019, end: 20091228
  2. CREON [Suspect]
     Indication: PRODUCT USED FOR UNKNOWN INDICATION
     Dosage: DAILY DOSE: 2 DOSAGE FORM; UNIT DOSE; 25000
     Route: 048
     Dates: start: 20090701
  3. CREON [Suspect]
     Dosage: DAILY DOSE: 9 DOSAGE FORM; UNIT DOSE: 25000
     Route: 048

REACTIONS (4)
  - PNEUMONITIS [None]
  - INTESTINAL RESECTION [None]
  - PANCREATECTOMY [None]
  - LYMPHORRHOEA [None]
